FAERS Safety Report 4631326-4 (Version None)
Quarter: 2005Q2

REPORT INFORMATION
  Report Type: 
  Country: None (occurrence: None)
  Receive Date: 20050406
  Receipt Date: 20050318
  Transmission Date: 20051028
  Serious: Yes (Death)
  Sender: FDA-Public Use
  Company Number: US_0503113803

PATIENT
  Age: 36 Year
  Sex: Male
  Weight: 73 kg

DRUGS (2)
  1. ZYPREXA [Suspect]
     Indication: DEPRESSION
     Dosage: 5 MG
     Dates: start: 20030207
  2. PAXIL [Concomitant]

REACTIONS (15)
  - AGITATION [None]
  - AKATHISIA [None]
  - ANXIETY [None]
  - COMMINUTED FRACTURE [None]
  - COMPLETED SUICIDE [None]
  - CONVERSION DISORDER [None]
  - DELUSION [None]
  - DEPRESSED MOOD [None]
  - FEELING ABNORMAL [None]
  - FEELING OF DESPAIR [None]
  - GUN SHOT WOUND [None]
  - HEAD INJURY [None]
  - NERVOUSNESS [None]
  - PARANOIA [None]
  - TEARFULNESS [None]
